FAERS Safety Report 15475978 (Version 1)
Quarter: 2018Q4

REPORT INFORMATION
  Report Type: Spontaneous
  Country: IT (occurrence: IT)
  Receive Date: 20181009
  Receipt Date: 20181009
  Transmission Date: 20190205
  Serious: Yes (Hospitalization)
  Sender: FDA-Public Use
  Company Number: PHHY2018IT117821

PATIENT
  Age: 18 Year
  Sex: Female

DRUGS (3)
  1. TRILAFON [Suspect]
     Active Substance: PERPHENAZINE
     Indication: DRUG ABUSE
     Dosage: 36 MG, UNK
     Route: 048
     Dates: start: 20180710, end: 20180710
  2. STILNOX [Suspect]
     Active Substance: ZOLPIDEM TARTRATE
     Indication: DRUG ABUSE
     Dosage: 3 MG, UNK TOTAL
     Route: 048
     Dates: start: 20180710, end: 20180710
  3. FLUOXETINE [Suspect]
     Active Substance: FLUOXETINE HYDROCHLORIDE
     Indication: DRUG ABUSE
     Dosage: 04 MG, UNK
     Route: 048
     Dates: start: 20180710, end: 20180710

REACTIONS (3)
  - Sopor [Recovered/Resolved]
  - Toxicity to various agents [Recovered/Resolved]
  - Verbal abuse [Recovered/Resolved]

NARRATIVE: CASE EVENT DATE: 20180710
